FAERS Safety Report 12084678 (Version 1)
Quarter: 2016Q1

REPORT INFORMATION
  Report Type: Spontaneous
  Country: GB (occurrence: GB)
  Receive Date: 20160217
  Receipt Date: 20160217
  Transmission Date: 20160526
  Serious: Yes (Other)
  Sender: FDA-Public Use
  Company Number: GB-JNJFOC-20160206040

PATIENT
  Age: 8 Week
  Sex: Female

DRUGS (1)
  1. CALPOL [Suspect]
     Active Substance: ACETAMINOPHEN
     Indication: PRODUCT USED FOR UNKNOWN INDICATION
     Route: 048
     Dates: start: 20160204

REACTIONS (4)
  - Choking [Unknown]
  - Dyspnoea [Unknown]
  - Syringe issue [Unknown]
  - Vomiting projectile [Unknown]

NARRATIVE: CASE EVENT DATE: 20160204
